FAERS Safety Report 19100978 (Version 5)
Quarter: 2021Q3

REPORT INFORMATION
  Report Type: Report from Study
  Country: US (occurrence: US)
  Receive Date: 20210407
  Receipt Date: 20210713
  Transmission Date: 20211014
  Serious: Yes (Death, Hospitalization)
  Sender: FDA-Public Use
  Company Number: US-ROCHE-2805138

PATIENT
  Age: 72 Year
  Sex: Female
  Weight: 51.8 kg

DRUGS (21)
  1. AMG 510 [Suspect]
     Active Substance: AMG-510
     Indication: K-RAS GENE MUTATION
     Dosage: ON 29/MAR/2021, SHE RECEIVED MOST RECENT DOSE OF AMG 510 PRIOR TO ONSET OF SERIOUS ADVERSE EVENT.
     Route: 048
     Dates: start: 20210119
  2. VITAMIN D3 [Concomitant]
     Active Substance: CHOLECALCIFEROL
  3. FENTANYL. [Concomitant]
     Active Substance: FENTANYL
  4. FOLIC ACID. [Concomitant]
     Active Substance: FOLIC ACID
  5. ATORVASTATIN [Concomitant]
     Active Substance: ATORVASTATIN
  6. LORAZEPAM. [Concomitant]
     Active Substance: LORAZEPAM
  7. ONDANSETRON [Concomitant]
     Active Substance: ONDANSETRON
  8. OMEPRAZOLE. [Concomitant]
     Active Substance: OMEPRAZOLE
     Dates: start: 20210310, end: 20210316
  9. SENOKOT?S [Concomitant]
     Active Substance: DOCUSATE SODIUM\SENNOSIDES
  10. DEXAMETHASONE. [Concomitant]
     Active Substance: DEXAMETHASONE
     Dates: start: 20210205, end: 20210403
  11. METHADONE [Concomitant]
     Active Substance: METHADONE HYDROCHLORIDE
     Dates: start: 20210317, end: 20210324
  12. OXYCODONE [Concomitant]
     Active Substance: OXYCODONE
     Dates: start: 20201010
  13. ATEZOLIZUMAB. [Suspect]
     Active Substance: ATEZOLIZUMAB
     Indication: K-RAS GENE MUTATION
     Dosage: ON 23/MAR/2021, SHE RECEIVED MOST RECENT DOSE OF ATEZOLIZUMAB PRIOR TO ONSET OF SERIOUS ADVERSE EVEN
     Route: 041
     Dates: start: 20210209
  14. ATEZOLIZUMAB. [Suspect]
     Active Substance: ATEZOLIZUMAB
     Indication: NON-SMALL CELL LUNG CANCER STAGE IV
  15. AMG 510 [Suspect]
     Active Substance: AMG-510
     Indication: NON-SMALL CELL LUNG CANCER STAGE IV
  16. AMLODIPINE [Concomitant]
     Active Substance: AMLODIPINE BESYLATE
  17. CALCIUM CARBONATE. [Concomitant]
     Active Substance: CALCIUM CARBONATE
  18. GABAPENTIN. [Concomitant]
     Active Substance: GABAPENTIN
     Dates: start: 20210224, end: 20210403
  19. MIRALAX [Concomitant]
     Active Substance: POLYETHYLENE GLYCOL 3350
     Dates: start: 20210323, end: 20210326
  20. MAGNESIUM OXIDE. [Concomitant]
     Active Substance: MAGNESIUM OXIDE
     Dates: start: 20210202, end: 20210403
  21. COVID?19 VACCINE [Concomitant]

REACTIONS (1)
  - Non-small cell lung cancer [Fatal]

NARRATIVE: CASE EVENT DATE: 20210327
